FAERS Safety Report 9619968 (Version 1)
Quarter: 2013Q4

REPORT INFORMATION
  Report Type: Spontaneous
  Country: US (occurrence: US)
  Receive Date: 20131014
  Receipt Date: 20131014
  Transmission Date: 20140711
  Serious: Yes (Other)
  Sender: FDA-Public Use
  Company Number: US-PFIZER INC-2013290058

PATIENT
  Age: 81 Year
  Sex: Female
  Weight: 63 kg

DRUGS (6)
  1. PREMARIN [Suspect]
     Indication: VAGINAL HAEMORRHAGE
     Dosage: 0.3 MG, 1X/DAY
     Route: 048
     Dates: start: 20130830, end: 20131005
  2. DIGOXIN [Concomitant]
     Indication: CARDIAC DISORDER
     Dosage: UNK, 1X/DAY
  3. ASPIRIN [Concomitant]
     Indication: CARDIAC DISORDER
     Dosage: 81 MG, 1X/DAY
  4. ZOCOR [Concomitant]
     Dosage: 40 MG, 1X/DAY
  5. LOPRESSOR [Concomitant]
     Dosage: HALF TABLET, 2X/DAY
  6. XANAX [Concomitant]
     Dosage: UNK

REACTIONS (3)
  - Vaginal haemorrhage [Not Recovered/Not Resolved]
  - Inappropriate schedule of drug administration [Unknown]
  - Drug ineffective for unapproved indication [Unknown]
